FAERS Safety Report 11900910 (Version 1)
Quarter: 2016Q1

REPORT INFORMATION
  Report Type: Report from Study
  Country: US (occurrence: US)
  Receive Date: 20160108
  Receipt Date: 20160108
  Transmission Date: 20160526
  Serious: No
  Sender: FDA-Public Use
  Company Number: US-ABBVIE-15P-163-1468243-00

PATIENT
  Age: 42 Year
  Sex: Female
  Weight: 85.81 kg

DRUGS (5)
  1. TRAMADOL. [Concomitant]
     Active Substance: TRAMADOL
     Indication: BACK DISORDER
     Dosage: 1-2 DAILY
  2. RIBAVIRIN. [Suspect]
     Active Substance: RIBAVIRIN
     Dosage: IN AM
     Route: 048
     Dates: start: 201509
  3. RIBAVIRIN. [Suspect]
     Active Substance: RIBAVIRIN
     Indication: CHRONIC HEPATITIS C
     Route: 048
     Dates: start: 20150828, end: 201509
  4. VIEKIRA PAK [Suspect]
     Active Substance: DASABUVIR\OMBITASVIR\PARITAPREVIR\RITONAVIR
     Indication: CHRONIC HEPATITIS C
     Dosage: 3 TABLETS AND 1 TABLET
     Route: 048
     Dates: start: 20150828
  5. CLONAZEPAM. [Concomitant]
     Active Substance: CLONAZEPAM
     Indication: PRODUCT USED FOR UNKNOWN INDICATION
     Dosage: AS REQUIRED

REACTIONS (11)
  - Nasopharyngitis [Recovering/Resolving]
  - Anaemia [Not Recovered/Not Resolved]
  - Paraesthesia [Not Recovered/Not Resolved]
  - Headache [Recovering/Resolving]
  - Feeling hot [Recovering/Resolving]
  - Rhinorrhoea [Recovering/Resolving]
  - Dyspnoea [Recovering/Resolving]
  - Pain in extremity [Not Recovered/Not Resolved]
  - Pyrexia [Recovering/Resolving]
  - Oral herpes [Not Recovered/Not Resolved]
  - Nasal congestion [Recovering/Resolving]

NARRATIVE: CASE EVENT DATE: 201509
